FAERS Safety Report 8176788-3 (Version None)
Quarter: 2012Q1

REPORT INFORMATION
  Report Type: 
  Country: None (occurrence: None)
  Receive Date: 20120301
  Receipt Date: 20120222
  Transmission Date: 20120608
  Serious: Yes (Other)
  Sender: FDA-Public Use
  Company Number: US-JNJFOC-20120211818

PATIENT
  Age: 42 Year
  Sex: Female

DRUGS (3)
  1. REMICADE [Suspect]
     Route: 042
  2. REMICADE [Suspect]
     Indication: ANKYLOSING SPONDYLITIS
     Route: 042
  3. REMICADE [Suspect]
     Route: 042
     Dates: start: 20070101

REACTIONS (10)
  - CHILLS [None]
  - CHEST PAIN [None]
  - HYPERHIDROSIS [None]
  - SURGERY [None]
  - URTICARIA [None]
  - ERYTHEMA [None]
  - DYSPNOEA [None]
  - DRUG HYPERSENSITIVITY [None]
  - FLUSHING [None]
  - FEELING ABNORMAL [None]
